FAERS Safety Report 10087184 (Version 2)
Quarter: 2014Q2

REPORT INFORMATION
  Report Type: Spontaneous
  Country: JP (occurrence: JP)
  Receive Date: 20140418
  Receipt Date: 20140501
  Transmission Date: 20141212
  Serious: Yes (Hospitalization)
  Sender: FDA-Public Use
  Company Number: JP-ABBVIE-14P-087-1227747-00

PATIENT
  Sex: Female

DRUGS (3)
  1. KALETRA [Suspect]
     Indication: HIV INFECTION
  2. ABACAVIR [Concomitant]
     Indication: HIV INFECTION
  3. LAMIVUDINE [Concomitant]
     Indication: HIV INFECTION

REACTIONS (1)
  - Caesarean section [Unknown]
